FAERS Safety Report 4675742-3 (Version None)
Quarter: 2005Q2

REPORT INFORMATION
  Report Type: 
  Country: None (occurrence: None)
  Receive Date: 20050527
  Receipt Date: 20050311
  Transmission Date: 20051028
  Serious: Yes (Other)
  Sender: FDA-Public Use
  Company Number: US-BRISTOL-MYERS SQUIBB COMPANY-12895504

PATIENT
  Age: 58 Year
  Sex: Female

DRUGS (2)
  1. ERBITUX [Suspect]
     Indication: COLORECTAL CANCER
     Dosage: CETUXIMAB HELD FOR 2 WEEKS
     Route: 042
  2. IRINOTECAN [Concomitant]

REACTIONS (1)
  - RASH [None]
